FAERS Safety Report 9915933 (Version 2)
Quarter: 2014Q1

REPORT INFORMATION
  Report Type: Spontaneous
  Country: US (occurrence: US)
  Receive Date: 20140221
  Receipt Date: 20140226
  Transmission Date: 20141002
  Serious: Yes (Hospitalization)
  Sender: FDA-Public Use
  Company Number: US-009507513-1402USA009559

PATIENT
  Age: 73 Year
  Sex: Female

DRUGS (1)
  1. COSOPT PF [Suspect]
     Indication: GLAUCOMA
     Dosage: 1 DROP IN EACH EYE EVERY MORNING
     Route: 047
     Dates: start: 201311, end: 20140217

REACTIONS (3)
  - Blood glucose decreased [Not Recovered/Not Resolved]
  - Parkinson^s disease [Not Recovered/Not Resolved]
  - Product quality issue [Unknown]
